FAERS Safety Report 22015013 (Version 1)
Quarter: 2023Q1

REPORT INFORMATION
  Report Type: Other
  Country: US (occurrence: None)
  Receive Date: 20230221
  Receipt Date: 20230221
  Transmission Date: 20230417
  Serious: No
  Sender: FDA-Public Use
  Company Number: US-ROCHE-3289451

PATIENT
  Age: 28 Year
  Sex: Female

DRUGS (4)
  1. OCREVUS [Suspect]
     Active Substance: OCRELIZUMAB
     Indication: Relapsing-remitting multiple sclerosis
     Dosage: YES; 2 DOSES 300MG; THEN 600MG FOR EVERY 6 MONTHS
     Route: 042
     Dates: start: 202108
  2. LEXAPRO [Concomitant]
     Active Substance: ESCITALOPRAM OXALATE
     Route: 065
  3. MODAFINIL [Concomitant]
     Active Substance: MODAFINIL
     Route: 065
  4. ZOLPIDEM [Concomitant]
     Active Substance: ZOLPIDEM TARTRATE
     Route: 065

REACTIONS (5)
  - Tinea infection [Not Recovered/Not Resolved]
  - Influenza [Recovered/Resolved]
  - Ear infection [Not Recovered/Not Resolved]
  - Fatigue [Recovered/Resolved]
  - Pharyngeal swelling [Not Recovered/Not Resolved]

NARRATIVE: CASE EVENT DATE: 20210901
